FAERS Safety Report 5629086-3 (Version None)
Quarter: 2008Q1

REPORT INFORMATION
  Report Type: 
  Country: None (occurrence: None)
  Receive Date: 20080216
  Receipt Date: 20071219
  Transmission Date: 20080703
  Serious: Yes (Other)
  Sender: FDA-Public Use
  Company Number: US-PURDUE-USA_2007_0031635

PATIENT
  Age: 68 Year
  Sex: Female
  Weight: 54 kg

DRUGS (1)
  1. OXYCONTIN [Suspect]
     Indication: BACK PAIN
     Dosage: 40 MG, DAILY
     Dates: start: 20020115, end: 20020714

REACTIONS (6)
  - AMNESIA [None]
  - COMA [None]
  - FALL [None]
  - HYPERSOMNIA [None]
  - LETHARGY [None]
  - WALKING DISABILITY [None]
